FAERS Safety Report 10222451 (Version 3)
Quarter: 2015Q1

REPORT INFORMATION
  Report Type: Spontaneous
  Country: US (occurrence: US)
  Receive Date: 20140606
  Receipt Date: 20150312
  Transmission Date: 20150720
  Serious: Yes (Other)
  Sender: FDA-Public Use
  Company Number: US-TEVA-486646USA

PATIENT
  Age: 25 Year
  Sex: Female
  Weight: 59.02 kg

DRUGS (2)
  1. PARAGARD T 380A [Suspect]
     Active Substance: COPPER
     Indication: CONTRACEPTION
     Route: 015
     Dates: start: 20120702, end: 20140626
  2. PARAGARD T 380A [Suspect]
     Active Substance: COPPER
     Route: 015

REACTIONS (9)
  - Pelvic pain [Recovered/Resolved]
  - Abdominal pain [Recovered/Resolved]
  - Vaginal discharge [Recovered/Resolved]
  - Embedded device [Recovered/Resolved]
  - Dyspareunia [Recovered/Resolved]
  - Vulvovaginal pruritus [Recovered/Resolved]
  - Haemorrhagic ovarian cyst [Recovered/Resolved]
  - Device dislocation [Recovered/Resolved]
  - Vulvovaginal discomfort [Recovered/Resolved]

NARRATIVE: CASE EVENT DATE: 20140501
